FAERS Safety Report 5388675-4 (Version None)
Quarter: 2007Q3

REPORT INFORMATION
  Report Type: 
  Country: None (occurrence: None)
  Receive Date: 20070712
  Receipt Date: 20070629
  Transmission Date: 20080115
  Serious: Yes (Hospitalization)
  Sender: FDA-Public Use
  Company Number: 158121ISR

PATIENT
  Age: 63 Year
  Sex: Female

DRUGS (3)
  1. CISPLATIN [Suspect]
     Indication: SQUAMOUS CELL CARCINOMA
     Dosage: (100 MG/M2, 1 IN 3 WK) INTRAVENOUS
     Route: 042
     Dates: start: 20051118
  2. FLUOROURACIL [Suspect]
     Indication: SQUAMOUS CELL CARCINOMA
     Dosage: (1 IN 3 WK) INTRAVENOUS
     Route: 042
     Dates: start: 20051118
  3. CETUXIMAB [Suspect]
     Indication: SQUAMOUS CELL CARCINOMA
     Dosage: (250 MG/M2, 1 IN 1 WK) INTRAVENOUS DRIP
     Route: 041
     Dates: start: 20051118

REACTIONS (5)
  - ANAEMIA [None]
  - FEBRILE NEUTROPENIA [None]
  - LEUKOPENIA [None]
  - PLATELET COUNT DECREASED [None]
  - URINE ELECTROLYTES DECREASED [None]
